FAERS Safety Report 23406633 (Version 5)
Quarter: 2024Q1

REPORT INFORMATION
  Report Type: Spontaneous
  Country: CZ (occurrence: CZ)
  Receive Date: 20240116
  Receipt Date: 20240226
  Transmission Date: 20240410
  Serious: Yes (Hospitalization)
  Sender: FDA-Public Use
  Company Number: CZ-BAXTER-2023BAX032085

PATIENT
  Age: 49 Year
  Sex: Female
  Weight: 69 kg

DRUGS (13)
  1. CYCLOPHOSPHAMIDE [Suspect]
     Active Substance: CYCLOPHOSPHAMIDE
     Indication: Non-Hodgkin^s lymphoma
     Dosage: 1320 MG, Q3W,EVERY 3 WEEKS, ONGOING
     Route: 042
     Dates: start: 20230904
  2. DOXORUBICIN [Suspect]
     Active Substance: DOXORUBICIN
     Indication: Non-Hodgkin^s lymphoma
     Dosage: 88 MG, Q3W,EVERY 3 WEEKS, ONGOING
     Route: 042
     Dates: start: 20230904
  3. EPCORITAMAB [Suspect]
     Active Substance: EPCORITAMAB
     Indication: Non-Hodgkin^s lymphoma
     Dosage: 0.16 MG,PRIMING DOSE C1, D1, TOTAL
     Route: 058
     Dates: start: 20230904, end: 20230904
  4. EPCORITAMAB [Suspect]
     Active Substance: EPCORITAMAB
     Dosage: 0.8 MG,INTERMEDIATE DOSE, C1, D8, TOTAL
     Route: 058
     Dates: start: 20230911, end: 20230911
  5. EPCORITAMAB [Suspect]
     Active Substance: EPCORITAMAB
     Dosage: 0.16 MG RE-PRIMING DOSE, TOTAL
     Route: 058
     Dates: start: 20231002, end: 20231002
  6. IBRUTINIB [Suspect]
     Active Substance: IBRUTINIB
     Indication: Non-Hodgkin^s lymphoma
     Dosage: UNK
     Route: 065
  7. POLATUZUMAB VEDOTIN [Suspect]
     Active Substance: POLATUZUMAB VEDOTIN
     Indication: Non-Hodgkin^s lymphoma
     Dosage: 126 MG, Q3W,EVERY 3 WEEKS, ONGOING
     Route: 042
     Dates: start: 20230904
  8. PREDNISONE [Suspect]
     Active Substance: PREDNISONE
     Dosage: 100 MG D1-5, C1-6, EVERY 1 DAYS, ONGOING
     Route: 048
     Dates: start: 20230904
  9. PREDNISONE [Suspect]
     Active Substance: PREDNISONE
     Indication: Non-Hodgkin^s lymphoma
     Dosage: 20 MG D1-5, C1-6, EVERY 1 DAYS,ONGOING
     Route: 048
     Dates: start: 20230904
  10. RITUXIMAB [Suspect]
     Active Substance: RITUXIMAB
     Indication: Non-Hodgkin^s lymphoma
     Dosage: 660 MG, EVERY 3 WEEKS,ONGOING
     Route: 042
     Dates: start: 20230904
  11. VENETOCLAX [Suspect]
     Active Substance: VENETOCLAX
     Indication: Non-Hodgkin^s lymphoma
     Dosage: UNK
     Route: 065
  12. SULFAMETHOXAZOLE\TRIMETHOPRIM [Concomitant]
     Active Substance: SULFAMETHOXAZOLE\TRIMETHOPRIM
     Indication: Antifungal prophylaxis
     Dosage: 960 MG, 2/DAYS ROUTE OF ADMIN (FREE TEXT): UNKNOWN ROUTE
     Route: 065
     Dates: start: 20230904
  13. RAMIPRIL [Concomitant]
     Active Substance: RAMIPRIL
     Indication: Hypertension
     Dosage: 125 MG, EVERY 2 DAYS, START DATE: 2019 ROUTE OF ADMIN (FREE TEXT): UNKNOWN ROUTE
     Route: 065

REACTIONS (1)
  - COVID-19 [Recovered/Resolved]

NARRATIVE: CASE EVENT DATE: 20230918
